FAERS Safety Report 6300784-1 (Version None)
Quarter: 2009Q3

REPORT INFORMATION
  Report Type: 
  Country: None (occurrence: None)
  Receive Date: 20090807
  Receipt Date: 20090518
  Transmission Date: 20100115
  Serious: Yes (Hospitalization, Other)
  Sender: FDA-Public Use
  Company Number: BE-BAYER-200920445GPV

PATIENT

DRUGS (10)
  1. BETAFERON [Suspect]
     Indication: MULTIPLE SCLEROSIS
     Dates: start: 20020517, end: 20090108
  2. PREGABALIN [Concomitant]
     Indication: NEURALGIA
     Route: 048
     Dates: end: 20090108
  3. AZATHIOPRINE [Concomitant]
     Indication: IMMUNOSUPPRESSION
     Route: 048
     Dates: end: 20090108
  4. TARTRATE DE TOLTERODINE [Concomitant]
     Indication: MICTURITION URGENCY
     Route: 048
     Dates: end: 20090108
  5. TRAMADOL HCL [Concomitant]
     Indication: PROPHYLAXIS
     Route: 048
     Dates: start: 20080201, end: 20090108
  6. CARBAMAZEPINE [Concomitant]
     Indication: MULTIPLE SCLEROSIS
     Route: 048
     Dates: start: 20080201, end: 20090108
  7. DEXTROPROPOXYPHENE [Concomitant]
     Indication: MULTIPLE SCLEROSIS
     Route: 048
     Dates: start: 20080201, end: 20090108
  8. IBUPROFEN [Concomitant]
     Indication: INFLUENZA LIKE ILLNESS
     Route: 048
     Dates: start: 20080201, end: 20090108
  9. 4 AMINOPYRIDINE [Concomitant]
     Indication: FATIGUE
     Route: 048
     Dates: start: 20080929, end: 20090108
  10. BOTULINE TOXINE VS. PLACEBO [Concomitant]
     Indication: MICTURITION URGENCY
     Dosage: 200/300 UI
     Route: 043
     Dates: start: 20081015, end: 20090108

REACTIONS (5)
  - ALANINE AMINOTRANSFERASE INCREASED [None]
  - ASPARTATE AMINOTRANSFERASE INCREASED [None]
  - EPILEPSY [None]
  - GAMMA-GLUTAMYLTRANSFERASE INCREASED [None]
  - HYPERTHERMIA [None]
